FAERS Safety Report 8362655-9 (Version None)
Quarter: 2012Q2

REPORT INFORMATION
  Report Type: 
  Country: None (occurrence: None)
  Receive Date: 20120516
  Receipt Date: 20120514
  Transmission Date: 20120825
  Serious: No
  Sender: FDA-Public Use
  Company Number: US-PFIZER INC-2012117979

PATIENT
  Sex: Female
  Weight: 74.83 kg

DRUGS (6)
  1. MOBIC [Concomitant]
     Indication: ARTHRITIS
     Dosage: 15 MG, DAILY
  2. ZOLOFT [Concomitant]
     Indication: BACK DISORDER
     Dosage: 50 MG, DAILY
  3. CHANTIX [Suspect]
     Indication: SMOKING CESSATION THERAPY
     Dosage: 0.5 MG, DAILY
  4. CHANTIX [Suspect]
     Dosage: 1 MG, 2X/DAY
  5. PREDNISONE [Concomitant]
     Indication: ARTHRITIS
     Dosage: 10 MG, DAILY
  6. PREDNISONE [Concomitant]
     Indication: DYSPNOEA

REACTIONS (1)
  - ABNORMAL DREAMS [None]
